FAERS Safety Report 10803152 (Version 3)
Quarter: 2016Q1

REPORT INFORMATION
  Report Type: Report from Study
  Country: US (occurrence: US)
  Receive Date: 20150217
  Receipt Date: 20160203
  Transmission Date: 20160525
  Serious: Yes (Hospitalization)
  Sender: FDA-Public Use
  Company Number: US-MERCK-1502USA006608

PATIENT
  Age: 72 Year
  Sex: Male
  Weight: 78.91 kg

DRUGS (11)
  1. VITAMINS (UNSPECIFIED) [Concomitant]
     Active Substance: VITAMINS
     Indication: ROUTINE HEALTH MAINTENANCE
     Dosage: 1 TABLET, QD
     Route: 048
     Dates: start: 20130918
  2. PEMBROLIZUMAB. [Suspect]
     Active Substance: PEMBROLIZUMAB
     Indication: NON-SMALL CELL LUNG CANCER
     Dosage: 10 MG/KG, QOW
     Route: 042
     Dates: start: 20130809
  3. AMBIEN [Concomitant]
     Active Substance: ZOLPIDEM TARTRATE
     Indication: INSOMNIA
     Dosage: 5 MG, HS
     Route: 048
     Dates: start: 20150121
  4. AUGMENTIN [Concomitant]
     Active Substance: AMOXICILLIN\CLAVULANATE POTASSIUM
     Indication: ADVERSE EVENT
     Dosage: UNK
     Route: 065
     Dates: start: 20140501
  5. ALEVE [Concomitant]
     Active Substance: NAPROXEN SODIUM
     Indication: ADVERSE EVENT
     Dosage: 220 MG DAILY, PRN
     Route: 048
     Dates: start: 20140319
  6. DILAUDID [Concomitant]
     Active Substance: HYDROMORPHONE HYDROCHLORIDE
     Indication: ADVERSE EVENT
     Dosage: 4 MG DAILY, PRN
     Route: 048
     Dates: start: 20140508
  7. TYLENOL [Concomitant]
     Active Substance: ACETAMINOPHEN
     Indication: ADVERSE EVENT
     Dosage: 650 MG DAILY, PRN
     Route: 048
     Dates: start: 20140319
  8. ZOFRAN [Concomitant]
     Active Substance: ONDANSETRON HYDROCHLORIDE
     Indication: PROPHYLAXIS OF NAUSEA AND VOMITING
     Dosage: UNK
     Dates: start: 20121114
  9. ASPIRIN. [Concomitant]
     Active Substance: ASPIRIN
     Indication: PAIN PROPHYLAXIS
     Dosage: 81 MG, QD
     Route: 048
     Dates: start: 20130918
  10. COLACE [Concomitant]
     Active Substance: DOCUSATE SODIUM
     Indication: ADVERSE EVENT
     Dosage: 100 MG, Q12H (EVERY TWELVE HOURS-2X DAY)
     Route: 048
     Dates: start: 20140508
  11. SENNA [Concomitant]
     Active Substance: SENNA LEAF\SENNOSIDES\SENNOSIDES A AND B
     Indication: ADVERSE EVENT
     Dosage: 1 TABLET, QD
     Route: 048
     Dates: start: 20140508

REACTIONS (1)
  - Duodenal perforation [Recovered/Resolved]

NARRATIVE: CASE EVENT DATE: 20150211
